FAERS Safety Report 9280634 (Version 2)
Quarter: 2013Q4

REPORT INFORMATION
  Report Type: Spontaneous
  Country: US (occurrence: US)
  Receive Date: 20130509
  Receipt Date: 20131001
  Transmission Date: 20140711
  Serious: No
  Sender: FDA-Public Use
  Company Number: US-PFIZER INC-2013140128

PATIENT
  Age: 57 Year
  Sex: Female

DRUGS (6)
  1. ERYTHROMYCIN [Suspect]
     Dosage: UNK
  2. TRIMETHOPRIM [Suspect]
     Dosage: UNK
  3. CIPRO ^BAYER^ [Suspect]
     Dosage: UNK
  4. CODEINE [Suspect]
     Dosage: UNK
  5. LORTAB [Suspect]
     Dosage: UNK
  6. AMBIEN [Suspect]
     Dosage: UNK

REACTIONS (1)
  - Drug hypersensitivity [Unknown]
